FAERS Safety Report 16742210 (Version 3)
Quarter: 2019Q4

REPORT INFORMATION
  Report Type: Report from Study
  Country: DE (occurrence: DE)
  Receive Date: 20190826
  Receipt Date: 20191112
  Transmission Date: 20200122
  Serious: Yes (Death, Hospitalization, Other)
  Sender: FDA-Public Use
  Company Number: DE-INCYTE CORPORATION-2019IN004944

PATIENT

DRUGS (2)
  1. INCB018424 [Suspect]
     Active Substance: RUXOLITINIB
     Dosage: 5 MG/DAY
     Route: 048
     Dates: start: 20170306
  2. INCB018424 [Suspect]
     Active Substance: RUXOLITINIB
     Indication: PRIMARY MYELOFIBROSIS
     Dosage: 5 MG/DAY
     Route: 048
     Dates: start: 20160809, end: 20170227

REACTIONS (29)
  - Mitral valve disease mixed [Unknown]
  - Haemorrhage [Recovered/Resolved]
  - Peripheral coldness [Fatal]
  - Headache [Unknown]
  - Puncture site haemorrhage [Recovered/Resolved]
  - Cardiovascular disorder [Fatal]
  - Fall [Unknown]
  - Pupils unequal [Unknown]
  - Splenomegaly [Fatal]
  - Craniocerebral injury [Recovered/Resolved]
  - Haematoma [Unknown]
  - White blood cell count decreased [Unknown]
  - Acute kidney injury [Fatal]
  - Haemoglobin decreased [Unknown]
  - Multiple organ dysfunction syndrome [Fatal]
  - Urinary tract infection [Unknown]
  - Skin haemorrhage [Recovered/Resolved]
  - Aortic valve stenosis [Unknown]
  - Pneumonia [Not Recovered/Not Resolved]
  - Procedural haemorrhage [Not Recovered/Not Resolved]
  - Circulatory collapse [Fatal]
  - Subdural haematoma [Unknown]
  - Oliguria [Fatal]
  - Pulmonary embolism [Recovered/Resolved]
  - Subgaleal haematoma [Unknown]
  - Hyperglycaemia [Fatal]
  - Disturbance in attention [Unknown]
  - Respiratory failure [Not Recovered/Not Resolved]
  - Thrombocytopenia [Unknown]

NARRATIVE: CASE EVENT DATE: 20160906
